FAERS Safety Report 5323508-3 (Version None)
Quarter: 2007Q3

REPORT INFORMATION
  Report Type: 
  Country: None (occurrence: None)
  Receive Date: 20070509
  Receipt Date: 20070509
  Transmission Date: 20080115
  Serious: Yes (Hospitalization)
  Sender: FDA-Public Use
  Company Number: None

PATIENT
  Age: 67 Year
  Sex: Male
  Weight: 70.3075 kg

DRUGS (1)
  1. PROAIR HFA [Suspect]
     Indication: ASTHMA
     Dosage: TWO PUFFS 4X DAY AS NEEDED OTHER
     Dates: start: 20070402, end: 20070402

REACTIONS (9)
  - ASTHMA [None]
  - BRONCHOSPASM [None]
  - CONDITION AGGRAVATED [None]
  - DRUG HYPERSENSITIVITY [None]
  - DRUG INEFFECTIVE [None]
  - LIP BLISTER [None]
  - PHARMACEUTICAL PRODUCT COMPLAINT [None]
  - PO2 ABNORMAL [None]
  - REACTION TO DRUG EXCIPIENTS [None]
